FAERS Safety Report 8414683-2 (Version None)
Quarter: 2012Q2

REPORT INFORMATION
  Report Type: 
  Country: None (occurrence: None)
  Receive Date: 20120605
  Receipt Date: 20120530
  Transmission Date: 20120825
  Serious: Yes (Hospitalization)
  Sender: FDA-Public Use
  Company Number: US-MERCK-1204USA03597

PATIENT
  Age: 62 Year
  Sex: Female
  Weight: 69 kg

DRUGS (2)
  1. FOSAMAX [Suspect]
     Route: 048
  2. AMPYRA [Suspect]
     Indication: GAIT DISTURBANCE
     Route: 048
     Dates: start: 20100101, end: 20120402

REACTIONS (7)
  - PALPITATIONS [None]
  - ELECTROCARDIOGRAM ABNORMAL [None]
  - MENTAL STATUS CHANGES [None]
  - VOMITING [None]
  - URINARY TRACT INFECTION [None]
  - NAUSEA [None]
  - CHEST PAIN [None]
